FAERS Safety Report 8831317 (Version 1)
Quarter: 2012Q4

REPORT INFORMATION
  Report Type: 
  Country: GB (occurrence: GB)
  Receive Date: 20121008
  Receipt Date: 20121008
  Transmission Date: 20130627
  Serious: Yes (Hospitalization, Disabling)
  Sender: FDA-Public Use
  Company Number: GB-PFIZER INC-2012244820

PATIENT
  Age: 66 Year
  Sex: Female

DRUGS (5)
  1. SIROLIMUS [Suspect]
     Indication: LIVER TRANSPLANT
     Route: 048
     Dates: start: 20111101, end: 20120405
  2. OMEPRAZOLE [Concomitant]
     Dosage: 20 mg, daily
  3. URSODEOXYCHOLIC ACID [Concomitant]
     Dosage: UNK
  4. ALENDRONATE SODIUM [Concomitant]
  5. BUDESONIDE [Concomitant]

REACTIONS (2)
  - Off label use [Not Recovered/Not Resolved]
  - Granuloma [Not Recovered/Not Resolved]
